FAERS Safety Report 13894339 (Version 1)
Quarter: 2017Q3

REPORT INFORMATION
  Report Type: Spontaneous
  Country: US (occurrence: None)
  Receive Date: 20170816
  Receipt Date: 20170816
  Transmission Date: 20171127
  Serious: Yes (Hospitalization, Disabling)
  Sender: FDA-Public Use
  Company Number: None

PATIENT
  Age: 58 Year
  Sex: Male
  Weight: 77 kg

DRUGS (1)
  1. EMPAGLIFLOZIN [Suspect]
     Active Substance: EMPAGLIFLOZIN
     Indication: DIABETES MELLITUS
     Route: 048
     Dates: start: 20170513, end: 20170811

REACTIONS (8)
  - Foot amputation [None]
  - Ischaemia [None]
  - Impaired healing [None]
  - Gangrene [None]
  - Oxygen saturation decreased [None]
  - Mental status changes [None]
  - Vasoconstriction [None]
  - Post procedural complication [None]

NARRATIVE: CASE EVENT DATE: 20170811
